FAERS Safety Report 12363529 (Version 2)
Quarter: 2020Q1

REPORT INFORMATION
  Report Type: Spontaneous
  Country: US (occurrence: US)
  Receive Date: 20160512
  Receipt Date: 20200110
  Transmission Date: 20200409
  Serious: No
  Sender: FDA-Public Use
  Company Number: US-UCBSA-2015007546

PATIENT
  Age: 40 Year
  Sex: Female

DRUGS (3)
  1. MVI [Concomitant]
     Active Substance: VITAMINS
     Indication: PRODUCT USED FOR UNKNOWN INDICATION
  2. BENEFIBER [Concomitant]
     Active Substance: STARCH, WHEAT
     Indication: PRODUCT USED FOR UNKNOWN INDICATION
  3. CIMZIA [Suspect]
     Active Substance: CERTOLIZUMAB PEGOL
     Indication: RHEUMATOID ARTHRITIS
     Dosage: 400 MG, WEEKLY (QW)
     Route: 058
     Dates: start: 20140818, end: 20141229

REACTIONS (2)
  - Inappropriate schedule of product administration [Unknown]
  - Injection site swelling [Unknown]

NARRATIVE: CASE EVENT DATE: 201408
